FAERS Safety Report 17025117 (Version 3)
Quarter: 2020Q4

REPORT INFORMATION
  Report Type: Report from Study
  Country: US (occurrence: US)
  Receive Date: 20191113
  Receipt Date: 20201023
  Transmission Date: 20210113
  Serious: Yes (Other)
  Sender: FDA-Public Use
  Company Number: US-EMD SERONO-9127889

PATIENT
  Age: 61 Year
  Sex: Female

DRUGS (2)
  1. REBIF [Suspect]
     Active Substance: INTERFERON BETA-1A
     Indication: MULTIPLE SCLEROSIS
     Dosage: MANUAL. REBIF PREFILLED SYRINGE.
     Route: 058
     Dates: start: 20110916
  2. REBIF [Suspect]
     Active Substance: INTERFERON BETA-1A
     Route: 058
     Dates: start: 2020

REACTIONS (7)
  - Surgery [Unknown]
  - Haematocrit decreased [Unknown]
  - Feeling abnormal [Unknown]
  - White blood cell count decreased [Recovered/Resolved]
  - Balance disorder [Unknown]
  - Off label use [Unknown]
  - Influenza like illness [Unknown]

NARRATIVE: CASE EVENT DATE: 201109
